FAERS Safety Report 19313604 (Version 7)
Quarter: 2023Q2

REPORT INFORMATION
  Report Type: Report from Study
  Country: IL (occurrence: IL)
  Receive Date: 20210527
  Receipt Date: 20230614
  Transmission Date: 20230721
  Serious: Yes (Hospitalization)
  Sender: FDA-Public Use
  Company Number: IL-KARYOPHARM-2021KPT000680

PATIENT
  Age: 73 Year
  Sex: Male
  Weight: 74 kg

DRUGS (25)
  1. SELINEXOR [Suspect]
     Active Substance: SELINEXOR
     Indication: Plasma cell myeloma
     Dosage: 100 MG, WEEKLY
     Route: 048
     Dates: start: 20210503, end: 20210525
  2. SELINEXOR [Suspect]
     Active Substance: SELINEXOR
     Dosage: 80 MG, WEEKLY
     Route: 048
     Dates: start: 20210526, end: 20210614
  3. SELINEXOR [Suspect]
     Active Substance: SELINEXOR
     Dosage: 60 MG, WEEKLY
     Route: 048
     Dates: start: 20210615
  4. BORTEZOMIB [Suspect]
     Active Substance: BORTEZOMIB
     Indication: Plasma cell myeloma
     Dosage: 1.3 MG/M2, WEEKLY FOR 4 WEEKS, THEN 1 WEEK OFF.
     Route: 058
     Dates: start: 20210503
  5. DEXAMETHASONE [Suspect]
     Active Substance: DEXAMETHASONE
     Indication: Plasma cell myeloma
     Dosage: 20 MG, 2X/WEEK
     Route: 048
     Dates: start: 20210503
  6. KEPPRA [Concomitant]
     Active Substance: LEVETIRACETAM
     Indication: Epilepsy
     Dosage: 1000 MG, BID
     Route: 048
     Dates: start: 2016, end: 20210504
  7. ENTECAVIR [Concomitant]
     Active Substance: ENTECAVIR
     Indication: Hepatitis B antigen positive
     Dosage: 0.5 MG, BID
     Route: 048
     Dates: start: 2016
  8. FENTANYL [Concomitant]
     Active Substance: FENTANYL
     Indication: Back pain
     Dosage: 400 UG, PRN
     Route: 060
     Dates: start: 2021
  9. FENTANYL [Concomitant]
     Active Substance: FENTANYL
     Indication: Pelvic pain
     Dosage: 800 MG, QD
     Route: 048
     Dates: start: 2021
  10. DIPYRONE [Concomitant]
     Active Substance: DIPYRONE
     Indication: Back pain
     Dosage: 100 MG, PRN
     Route: 048
     Dates: start: 2021
  11. DIPYRONE [Concomitant]
     Active Substance: DIPYRONE
     Indication: Pelvic pain
  12. OXYCODONE [Concomitant]
     Active Substance: OXYCODONE
     Indication: Back pain
     Dosage: 15 MG (10MG/ML) , PRN
     Route: 048
     Dates: start: 2021
  13. OXYCODONE [Concomitant]
     Active Substance: OXYCODONE
     Indication: Pelvic pain
  14. CALTRATE WITH VITAMIN D [Concomitant]
     Active Substance: CALCIUM CARBONATE\CHOLECALCIFEROL
     Indication: Osteoporosis
     Dosage: 1 DOSAGE FORM, BID
     Route: 048
     Dates: start: 2021
  15. QUETIAPINE FUMARATE [Concomitant]
     Active Substance: QUETIAPINE FUMARATE
     Indication: Insomnia
     Dosage: 25 MG, QD
     Route: 048
     Dates: start: 2020
  16. QUETIAPINE FUMARATE [Concomitant]
     Active Substance: QUETIAPINE FUMARATE
     Indication: Depression
  17. ATENOLOL [Concomitant]
     Active Substance: ATENOLOL
     Indication: Hypertension
     Dosage: 50 MG, QD
     Route: 048
     Dates: start: 2014
  18. TAMSULOSIN [Concomitant]
     Active Substance: TAMSULOSIN
     Indication: Benign prostatic hyperplasia
     Dosage: 0.4 MG, QD
     Route: 048
     Dates: start: 2015
  19. APIXABAN [Concomitant]
     Active Substance: APIXABAN
     Indication: Deep vein thrombosis
     Dosage: 2.5 MG, BID
     Route: 048
     Dates: start: 2020
  20. ACYCLOVIR [Concomitant]
     Active Substance: ACYCLOVIR
     Indication: Prophylaxis
     Dosage: 400 MG, QD
     Route: 048
     Dates: start: 2021
  21. FOLIC ACID [Concomitant]
     Active Substance: FOLIC ACID
     Indication: Supplementation therapy
     Dosage: 5 MG, QD
     Route: 048
     Dates: start: 2021
  22. OMEPRAZOLE [Concomitant]
     Active Substance: OMEPRAZOLE
     Indication: Dyspepsia
     Dosage: 20 MG, QD
     Route: 048
     Dates: start: 2014
  23. OMEPRAZOLE [Concomitant]
     Active Substance: OMEPRAZOLE
     Indication: Prophylaxis against gastrointestinal ulcer
  24. POTASSIUM CHLORIDE [Concomitant]
     Active Substance: POTASSIUM CHLORIDE
     Indication: Hypokalaemia
     Dosage: 1200 MG, QD
     Route: 048
     Dates: start: 2021
  25. AKYNZEO [Concomitant]
     Indication: Prophylaxis
     Dosage: 1 DOSAGE FORM, SINGLE
     Route: 048
     Dates: start: 20210503, end: 20210503

REACTIONS (2)
  - Pneumonia [Recovered/Resolved]
  - Device related bacteraemia [Recovered/Resolved]

NARRATIVE: CASE EVENT DATE: 20210512
